FAERS Safety Report 13834843 (Version 1)
Quarter: 2017Q3

REPORT INFORMATION
  Report Type: Spontaneous
  Country: US (occurrence: US)
  Receive Date: 20170804
  Receipt Date: 20170804
  Transmission Date: 20171127
  Serious: No
  Sender: FDA-Public Use
  Company Number: US-SUN PHARMACEUTICAL INDUSTRIES LTD-2017US-145813

PATIENT
  Sex: Female

DRUGS (2)
  1. BROMSITE 0.075% [Suspect]
     Active Substance: BROMFENAC SODIUM
     Indication: LACRIMATION INCREASED
  2. BROMSITE 0.075% [Suspect]
     Active Substance: BROMFENAC SODIUM
     Indication: VITREOUS FLOATERS
     Dosage: UNK
     Route: 047
     Dates: start: 20170518

REACTIONS (4)
  - Head discomfort [Unknown]
  - Eye irritation [Unknown]
  - Drug ineffective for unapproved indication [Unknown]
  - Tinnitus [Unknown]

NARRATIVE: CASE EVENT DATE: 201705
